FAERS Safety Report 4658703-X (Version None)
Quarter: 2005Q2

REPORT INFORMATION
  Report Type: 
  Country: None (occurrence: None)
  Receive Date: 20050510
  Receipt Date: 20050510
  Transmission Date: 20051028
  Serious: Yes (Life-Threatening, Hospitalization, Disabling)
  Sender: FDA-Public Use
  Company Number: None

PATIENT
  Sex: Female
  Weight: 61.2356 kg

DRUGS (5)
  1. CELEBREX [Suspect]
     Indication: ARTHRALGIA
     Dosage: 200 MG UP TO 4X/DAY
     Dates: start: 20011226, end: 20030515
  2. CELEBREX [Suspect]
     Indication: ARTHRITIS
     Dosage: 200 MG UP TO 4X/DAY
     Dates: start: 20011226, end: 20030515
  3. REMERON [Concomitant]
  4. PAXIL [Concomitant]
  5. MULTI-VITAMIN [Concomitant]

REACTIONS (8)
  - CEREBROVASCULAR ACCIDENT [None]
  - COMA [None]
  - CONTUSION [None]
  - DEEP VEIN THROMBOSIS [None]
  - NEUROPATHY [None]
  - PAIN [None]
  - PROCEDURAL COMPLICATION [None]
  - SUBDURAL HAEMATOMA [None]
